FAERS Safety Report 24014355 (Version 1)
Quarter: 2024Q2

REPORT INFORMATION
  Report Type: Spontaneous
  Country: CH (occurrence: None)
  Receive Date: 20240626
  Receipt Date: 20240626
  Transmission Date: 20240716
  Serious: Yes (Hospitalization, Other)
  Sender: FDA-Public Use
  Company Number: CH-Unichem Pharmaceuticals (USA) Inc-UCM202406-000745

PATIENT
  Age: 9 Year
  Sex: Female

DRUGS (2)
  1. LAMOTRIGINE [Suspect]
     Active Substance: LAMOTRIGINE
     Indication: Product used for unknown indication
  2. VALPROATE [Concomitant]
     Active Substance: VALPROIC ACID
     Indication: Product used for unknown indication

REACTIONS (5)
  - Pulmonary oedema [Unknown]
  - Pleural effusion [Unknown]
  - Hepatic failure [Unknown]
  - Renal failure [Unknown]
  - Drug reaction with eosinophilia and systemic symptoms [Unknown]
